FAERS Safety Report 8027767-8 (Version None)
Quarter: 2012Q1

REPORT INFORMATION
  Report Type: 
  Country: None (occurrence: None)
  Receive Date: 20120106
  Receipt Date: 20120106
  Transmission Date: 20120608
  Serious: No
  Sender: FDA-Public Use
  Company Number: None

PATIENT
  Sex: Male
  Weight: 69.399 kg

DRUGS (12)
  1. SUMATRIPTAN [Suspect]
     Indication: MIGRAINE
     Dosage: 50 MG
     Route: 048
     Dates: start: 20101130, end: 20110907
  2. DULOXETIME HYDROCHLORIDE [Concomitant]
  3. FOLIC ACID [Concomitant]
  4. IBUPROFEN [Concomitant]
  5. METHOTREXATE [Concomitant]
  6. ERGOCALCIFEROL [Concomitant]
  7. METOPROLOL TARTRATE [Concomitant]
  8. RANITIDINE [Concomitant]
  9. LISINOPRIL [Concomitant]
  10. ASPIRIN [Concomitant]
  11. HUMULIN 70/30 [Concomitant]
  12. CYANOCOBALAMIN [Concomitant]

REACTIONS (1)
  - DIZZINESS [None]
